FAERS Safety Report 12379694 (Version 1)
Quarter: 2016Q2

REPORT INFORMATION
  Report Type: Spontaneous
  Country: CN (occurrence: CN)
  Receive Date: 20160518
  Receipt Date: 20160518
  Transmission Date: 20160815
  Serious: Yes (Other)
  Sender: FDA-Public Use
  Company Number: CN-CIPLA LTD.-2016CN04871

PATIENT

DRUGS (2)
  1. IRINOTECAN [Suspect]
     Active Substance: IRINOTECAN
     Indication: CERVIX CARCINOMA
     Dosage: 60 MG/M2, INFUSION FOR 1 H ON DAYS 1, 8 AND 15 REPEATED EVERY 3 WEEKS
     Route: 042
  2. CISPLATIN. [Suspect]
     Active Substance: CISPLATIN
     Indication: CERVIX CARCINOMA
     Dosage: 70 MG/M2, INFUSION FOR 4 H ON DAY 1 EPEATED EVERY 3 WEEKS
     Route: 042

REACTIONS (1)
  - Intestinal obstruction [Unknown]
